FAERS Safety Report 6045472-4 (Version None)
Quarter: 2009Q1

REPORT INFORMATION
  Report Type: 
  Country: None (occurrence: None)
  Receive Date: 20090121
  Receipt Date: 20090115
  Transmission Date: 20090719
  Serious: Yes (Hospitalization)
  Sender: FDA-Public Use
  Company Number: US-BRISTOL-MYERS SQUIBB COMPANY-14381263

PATIENT
  Age: 59 Year
  Sex: Male
  Weight: 72 kg

DRUGS (18)
  1. CETUXIMAB [Suspect]
     Indication: PANCREATIC CARCINOMA
     Dosage: INITIATED ON 8OCT08, ALSO RECEIVED ON 12NOV2008
     Route: 042
     Dates: start: 20090106, end: 20090106
  2. OXALIPLATIN [Suspect]
     Indication: PANCREATIC CARCINOMA
     Dosage: ALSO RECEIVED ON 12NOV2008
     Route: 042
     Dates: start: 20081008, end: 20081008
  3. GEMZAR [Suspect]
     Indication: PANCREATIC CARCINOMA
     Dosage: ALSO RECEIVED ON 12NOV2008
     Route: 042
     Dates: start: 20081008, end: 20081008
  4. XELODA [Suspect]
     Indication: PANCREATIC CARCINOMA
     Route: 048
     Dates: start: 20090107
  5. RADIATION THERAPY [Suspect]
     Indication: PANCREATIC CARCINOMA
     Dates: start: 20090107
  6. NEXIUM [Concomitant]
  7. MORPHINE SULFATE [Concomitant]
  8. DILAUDID [Concomitant]
  9. LISINOPRIL [Concomitant]
  10. POLYETHYLENE GLYCOL [Concomitant]
  11. NOVOLOG [Concomitant]
  12. LEVEMIR [Concomitant]
  13. ONDANSETRON [Concomitant]
  14. PROCHLORPERAZINE [Concomitant]
  15. FENTANYL TRANSDERMAL SYSTEM [Concomitant]
  16. LANTUS [Concomitant]
  17. REMERON [Concomitant]
  18. ATIVAN [Concomitant]

REACTIONS (7)
  - DEHYDRATION [None]
  - NAUSEA [None]
  - NEUTROPENIA [None]
  - PAIN [None]
  - PHLEBITIS [None]
  - PLATELET COUNT [None]
  - THROMBOSIS [None]
